FAERS Safety Report 9198337 (Version 1)
Quarter: 2013Q1

REPORT INFORMATION
  Report Type: Spontaneous
  Country: US (occurrence: None)
  Receive Date: 20130327
  Receipt Date: 20130327
  Transmission Date: 20140127
  Serious: Yes (Other)
  Sender: FDA-Public Use
  Company Number: None

PATIENT
  Age: 47 Year
  Sex: Male
  Weight: 75.3 kg

DRUGS (1)
  1. SAVELLA [Suspect]
     Indication: FIBROMYALGIA
     Route: 048
     Dates: start: 20121016, end: 20130118

REACTIONS (10)
  - Prostatomegaly [None]
  - Dysuria [None]
  - Constipation [None]
  - Painful defaecation [None]
  - Agitation [None]
  - Mania [None]
  - Mood swings [None]
  - Morbid thoughts [None]
  - Impulse-control disorder [None]
  - Erectile dysfunction [None]
